FAERS Safety Report 4642893-9 (Version None)
Quarter: 2005Q2

REPORT INFORMATION
  Report Type: 
  Country: None (occurrence: None)
  Receive Date: 20050421
  Receipt Date: 20050413
  Transmission Date: 20051028
  Serious: Yes (Hospitalization)
  Sender: FDA-Public Use
  Company Number: 141836USA

PATIENT
  Sex: Male

DRUGS (1)
  1. PIMOZIDE [Suspect]
     Dosage: ORAL
     Route: 048

REACTIONS (2)
  - CARDIOVASCULAR DISORDER [None]
  - VERTIGO [None]
